FAERS Safety Report 8265614-X (Version None)
Quarter: 2012Q2

REPORT INFORMATION
  Report Type: 
  Country: None (occurrence: None)
  Receive Date: 20120406
  Receipt Date: 20120330
  Transmission Date: 20120825
  Serious: Yes (Hospitalization)
  Sender: FDA-Public Use
  Company Number: US-ACTELION-A-US2012-61825

PATIENT

DRUGS (9)
  1. CALCIUM CHANNEL BLOCKERS [Concomitant]
  2. VITAMIN D [Concomitant]
  3. PREVACID [Concomitant]
  4. METOPROLOL TARTRATE [Concomitant]
  5. LASIX [Concomitant]
  6. XALATAN [Concomitant]
  7. LISINOPRIL [Concomitant]
  8. LIPITOR [Concomitant]
  9. TRACLEER [Suspect]
     Indication: PULMONARY ARTERIAL HYPERTENSION
     Dosage: 125 MG, BID
     Route: 048
     Dates: start: 20120117

REACTIONS (10)
  - ANAEMIA [None]
  - RESPIRATORY DISTRESS [None]
  - MYELOFIBROSIS [None]
  - POLYCYTHAEMIA VERA [None]
  - PULMONARY ARTERIAL HYPERTENSION [None]
  - SPLENOMEGALY [None]
  - DYSPNOEA [None]
  - CARDIAC FAILURE CONGESTIVE [None]
  - TRANSFUSION [None]
  - PANCYTOPENIA [None]
